FAERS Safety Report 19975508 (Version 2)
Quarter: 2021Q4

REPORT INFORMATION
  Report Type: Report from Study
  Country: US (occurrence: US)
  Receive Date: 20211021
  Receipt Date: 20211029
  Transmission Date: 20220303
  Serious: Yes (Hospitalization)
  Sender: FDA-Public Use
  Company Number: US-MERCK HEALTHCARE KGAA-9272988

PATIENT
  Sex: Male

DRUGS (2)
  1. REBIF [Suspect]
     Active Substance: INTERFERON BETA-1A
     Indication: Multiple sclerosis
     Route: 058
     Dates: start: 20080620
  2. REBIF [Suspect]
     Active Substance: INTERFERON BETA-1A
     Dates: start: 202110

REACTIONS (4)
  - Diverticulitis [Unknown]
  - Post procedural complication [Recovering/Resolving]
  - Malaise [Recovering/Resolving]
  - Product administration interrupted [Unknown]
